FAERS Safety Report 11869841 (Version 1)
Quarter: 2015Q4

REPORT INFORMATION
  Report Type: Spontaneous
  Country: US (occurrence: US)
  Receive Date: 20151228
  Receipt Date: 20151228
  Transmission Date: 20160305
  Serious: No
  Sender: FDA-Public Use
  Company Number: US-TEVA-621565ACC

PATIENT
  Sex: Female
  Weight: 90.8 kg

DRUGS (1)
  1. AFTERA [Suspect]
     Active Substance: LEVONORGESTREL
     Indication: POST COITAL CONTRACEPTION
     Dates: start: 201407, end: 201407

REACTIONS (1)
  - Vaginal haemorrhage [Recovered/Resolved]

NARRATIVE: CASE EVENT DATE: 2014
